FAERS Safety Report 5374510-7 (Version None)
Quarter: 2007Q2

REPORT INFORMATION
  Report Type: 
  Country: None (occurrence: None)
  Receive Date: 20070629
  Receipt Date: 20070129
  Transmission Date: 20071010
  Serious: No
  Sender: FDA-Public Use
  Company Number: A0637392A

PATIENT
  Age: 52 Year
  Sex: Female

DRUGS (1)
  1. FORTAZ [Suspect]
     Indication: DRUG USE FOR UNKNOWN INDICATION
     Dosage: 2G FOUR TIMES PER DAY
     Route: 042

REACTIONS (1)
  - SKIN ODOUR ABNORMAL [None]
